FAERS Safety Report 9486608 (Version 2)
Quarter: 2013Q4

REPORT INFORMATION
  Report Type: Spontaneous
  Country: US (occurrence: US)
  Receive Date: 20130829
  Receipt Date: 20131014
  Transmission Date: 20140711
  Serious: Yes (Hospitalization)
  Sender: FDA-Public Use
  Company Number: US-PFIZER INC-2013246003

PATIENT
  Age: 53 Year
  Sex: Male

DRUGS (1)
  1. VFEND [Suspect]
     Dosage: UNK
     Dates: start: 20130604

REACTIONS (1)
  - Lung disorder [Unknown]
